FAERS Safety Report 4367310-8 (Version None)
Quarter: 2004Q2

REPORT INFORMATION
  Report Type: 
  Country: None (occurrence: None)
  Receive Date: 20040524
  Receipt Date: 20040427
  Transmission Date: 20050107
  Serious: Yes (Disabling)
  Sender: FDA-Public Use
  Company Number: THQ2003A01343

PATIENT
  Age: 78 Year
  Sex: Female

DRUGS (7)
  1. PIOGLITAZONE HCL [Suspect]
     Indication: DIABETES MELLITUS
     Dosage: 30 MG (1D) PER ORAL
     Route: 048
     Dates: start: 20030520, end: 20031030
  2. VIOXX [Concomitant]
  3. NITROPATCH (GLYCERYL TRINITRATE) [Concomitant]
  4. QUINAPRIL HCL [Concomitant]
  5. NORVASC [Concomitant]
  6. DIAMICRON [Concomitant]
  7. APO-TRIAZIDE (DYAZIDE) [Concomitant]

REACTIONS (3)
  - FLUID RETENTION [None]
  - JOINT SWELLING [None]
  - WEIGHT INCREASED [None]
